FAERS Safety Report 20880454 (Version 1)
Quarter: 2022Q2

REPORT INFORMATION
  Report Type: Spontaneous
  Country: NL (occurrence: NL)
  Receive Date: 20220526
  Receipt Date: 20220526
  Transmission Date: 20220721
  Serious: Yes (Death)
  Sender: FDA-Public Use
  Company Number: NL-ABBVIE-22K-114-4412319-00

PATIENT
  Sex: Male

DRUGS (3)
  1. CARBIDOPA\LEVODOPA [Suspect]
     Active Substance: CARBIDOPA\LEVODOPA
     Indication: Parkinson^s disease
     Route: 050
     Dates: start: 2020
  2. CARBIDOPA\LEVODOPA [Suspect]
     Active Substance: CARBIDOPA\LEVODOPA
  3. PRAMIPEXOLE [Interacting]
     Active Substance: PRAMIPEXOLE
     Indication: Parkinson^s disease
     Route: 048

REACTIONS (7)
  - Death [Fatal]
  - Fibroma [Unknown]
  - Wrong dose [Unknown]
  - Device material issue [Unknown]
  - Weight decreased [Not Recovered/Not Resolved]
  - Hyperhidrosis [Unknown]
  - Hyperkinesia [Unknown]

NARRATIVE: CASE EVENT DATE: 20220201
